FAERS Safety Report 7774981-2 (Version None)
Quarter: 2011Q3

REPORT INFORMATION
  Report Type: 
  Country: None (occurrence: None)
  Receive Date: 20110923
  Receipt Date: 20110909
  Transmission Date: 20111222
  Serious: Yes (Life-Threatening, Hospitalization)
  Sender: FDA-Public Use
  Company Number: US-CELGENEUS-163-21880-11091240

PATIENT
  Sex: Male
  Weight: 130.75 kg

DRUGS (18)
  1. CRESTOR [Concomitant]
     Dosage: 10 MILLIGRAM
     Route: 048
     Dates: start: 20030101
  2. NEXIUM [Concomitant]
     Dosage: 40 MILLIGRAM
     Route: 048
     Dates: start: 20000101
  3. M.V.I. [Concomitant]
     Dosage: 1
     Route: 048
     Dates: start: 19900101
  4. GLUCOSAMINE [Concomitant]
     Dosage: 1
     Route: 048
     Dates: start: 19950101
  5. MELATONIN [Concomitant]
     Dosage: 1
     Route: 048
     Dates: start: 19850101
  6. LYRICA [Concomitant]
     Dosage: 50 MILLIGRAM
     Route: 048
     Dates: start: 20090101
  7. ZOMETA [Concomitant]
     Route: 041
     Dates: start: 20110527
  8. REVLIMID [Suspect]
     Indication: MULTIPLE MYELOMA
     Dosage: 15 MILLIGRAM
     Route: 048
     Dates: start: 20110618
  9. ZETIA [Concomitant]
     Dosage: 10 MILLIGRAM
     Route: 048
     Dates: start: 20110101
  10. LOTREL [Concomitant]
     Dosage: 40 MILLIGRAM
     Route: 048
     Dates: start: 20030101
  11. ASPIRIN [Concomitant]
     Route: 048
     Dates: start: 19900101
  12. METAMUCIL-2 [Concomitant]
     Indication: PROPHYLAXIS
     Dosage: 1
     Route: 048
  13. VELCADE [Concomitant]
     Route: 041
     Dates: start: 20110527, end: 20110601
  14. IMODIUM [Concomitant]
     Route: 048
     Dates: start: 20110601, end: 20110601
  15. ZYRTEC [Concomitant]
     Dosage: 10 MILLIGRAM
     Route: 048
     Dates: start: 19950101
  16. ANTIEMETIC [Concomitant]
     Route: 048
     Dates: start: 20110601, end: 20110601
  17. METOPROLOL SUCCINATE [Concomitant]
     Dosage: 25 MILLIGRAM
     Route: 048
     Dates: start: 20020101
  18. CHLORTHALIDONE [Concomitant]
     Dosage: 25 MILLIGRAM
     Route: 048
     Dates: start: 20030101

REACTIONS (1)
  - MYOCARDIAL INFARCTION [None]
